FAERS Safety Report 4844528-9 (Version None)
Quarter: 2005Q4

REPORT INFORMATION
  Report Type: 
  Country: None (occurrence: None)
  Receive Date: 20051130
  Receipt Date: 20051130
  Transmission Date: 20060501
  Serious: Yes (Other)
  Sender: FDA-Public Use
  Company Number: None

PATIENT
  Sex: Male
  Weight: 87 kg

DRUGS (5)
  1. RITUXAN [Suspect]
     Indication: DIFFUSE LARGE B-CELL LYMPHOMA
     Dosage: 776 MG IV DAY 1
     Route: 042
     Dates: start: 20050819
  2. CYTOXAN [Suspect]
     Dosage: 1552 MG IV DAY 1
     Route: 042
  3. DOXIL [Suspect]
     Dosage: 83MG IV DAY 1
     Route: 042
     Dates: start: 20051021, end: 20051021
  4. VINCRISTINE [Suspect]
     Dosage: 2 MG IV DAY 1
     Route: 042
     Dates: start: 20051021, end: 20051021
  5. PREDNISONE [Suspect]
     Dosage: 80 MG ORALLY DAYS 1-5
     Route: 048

REACTIONS (2)
  - FALL [None]
  - PELVIC FRACTURE [None]
